FAERS Safety Report 20871351 (Version 1)
Quarter: 2022Q2

REPORT INFORMATION
  Report Type: Spontaneous
  Country: CA (occurrence: CA)
  Receive Date: 20220525
  Receipt Date: 20220525
  Transmission Date: 20220720
  Serious: Yes (Other)
  Sender: FDA-Public Use
  Company Number: None

PATIENT
  Age: 22 Year
  Sex: Female

DRUGS (4)
  1. METHOTREXATE [Suspect]
     Active Substance: METHOTREXATE
     Indication: Takayasu^s arteritis
     Dosage: 1 EVERY 1 WEEKS
     Route: 065
  2. FOLIC ACID [Concomitant]
     Active Substance: FOLIC ACID
  3. HUMIRA [Concomitant]
     Active Substance: ADALIMUMAB
     Route: 058
  4. PREDNISONE [Concomitant]
     Active Substance: PREDNISONE
     Dosage: 1 EVERY 1 DAYS

REACTIONS (5)
  - Alopecia [Unknown]
  - Anxiety [Unknown]
  - Aortic stenosis [Unknown]
  - Nausea [Unknown]
  - Off label use [Unknown]
